FAERS Safety Report 8809187 (Version 2)
Quarter: 2012Q4

REPORT INFORMATION
  Report Type: 
  Country: US (occurrence: US)
  Receive Date: 20120926
  Receipt Date: 20121001
  Transmission Date: 20130627
  Serious: Yes (Death)
  Sender: FDA-Public Use
  Company Number: PHHO2012US013873

PATIENT
  Age: 82 Year
  Sex: Female
  Weight: 66.8 kg

DRUGS (20)
  1. UNSPECIFIED INGREDIENT [Suspect]
     Indication: BREAST CANCER METASTATIC
     Dosage: 400 mg, UNK
     Dates: start: 20120814
  2. UNSPECIFIED INGREDIENT [Suspect]
     Dosage: 200 mg, UNK
  3. LETROZOLE [Suspect]
     Indication: BREAST CANCER METASTATIC
     Dosage: 2.5 mg, UNK
     Dates: start: 20120814
  4. FEMARA [Concomitant]
     Indication: BREAST CANCER METASTATIC
     Dosage: UNK
     Dates: start: 2007
  5. TAXOL [Concomitant]
     Indication: BREAST CANCER METASTATIC
     Dosage: UNK
     Dates: end: 2007
  6. ACENOCOUMAROL [Concomitant]
     Indication: BREAST CANCER METASTATIC
     Dosage: UNK
     Dates: end: 2007
  7. 5-FU [Concomitant]
     Indication: BREAST CANCER METASTATIC
     Dosage: UNK
     Dates: end: 2007
  8. ABRAXANE [Concomitant]
     Dosage: weekly
  9. FASLODEX [Concomitant]
     Indication: BREAST CANCER METASTATIC
  10. XELODA [Concomitant]
     Indication: BREAST CANCER METASTATIC
     Dosage: 3 DF, BID
     Route: 048
  11. FERREX [Concomitant]
     Dosage: 150 mg, QD
     Route: 048
  12. TEMAZEPAM [Concomitant]
     Dosage: 15 mg, QD
     Route: 048
  13. TAMSULOSIN [Concomitant]
     Dosage: 0.4 mg, QD
     Route: 048
  14. LEVOTHYROXINE [Concomitant]
     Dosage: 0.5 mg, QD
     Route: 048
  15. METOPROLOL TARTRATE [Concomitant]
     Dosage: 50 mg, BID
  16. DIPHENOXYLATE W/ATROPINE SULFATE [Concomitant]
     Dosage: PRN
  17. MULTIVITAMIN [Concomitant]
     Dosage: 1 DF, QD
  18. NORCO [Concomitant]
     Indication: PAIN
     Dosage: 1-2 tablets every 4 ours for 10 days
     Route: 048
  19. KLOR-CON [Concomitant]
     Dosage: 1 DF, QD
     Route: 048
  20. LASIX [Concomitant]
     Indication: OEDEMA
     Dosage: 1 DF, QD
     Route: 048

REACTIONS (1)
  - Death [Fatal]
